FAERS Safety Report 7633727-9 (Version None)
Quarter: 2011Q3

REPORT INFORMATION
  Report Type: 
  Country: None (occurrence: None)
  Receive Date: 20110701
  Receipt Date: 20110217
  Transmission Date: 20111222
  Serious: Yes (Hospitalization)
  Sender: FDA-Public Use
  Company Number: 7042911

PATIENT
  Age: 49 Year
  Sex: Male
  Weight: 111 kg

DRUGS (2)
  1. METHADONE HCL [Concomitant]
  2. REBIF [Suspect]
     Indication: MULTIPLE SCLEROSIS
     Dosage: 44 MCG, 3 IN 1 WK, SUBCUTANEOUS
     Route: 058
     Dates: start: 20030605, end: 20110204

REACTIONS (3)
  - ARTHRITIS [None]
  - TINNITUS [None]
  - MULTIPLE SCLEROSIS RELAPSE [None]
